FAERS Safety Report 10537901 (Version 1)
Quarter: 2014Q4

REPORT INFORMATION
  Report Type: Spontaneous
  Country: ES (occurrence: ES)
  Receive Date: 20141023
  Receipt Date: 20141023
  Transmission Date: 20150529
  Serious: Yes (Other)
  Sender: FDA-Public Use
  Company Number: ES-UCBSA-2014014598

PATIENT
  Age: 82 Year
  Sex: Female

DRUGS (1)
  1. XYZALL [Suspect]
     Active Substance: LEVOCETIRIZINE DIHYDROCHLORIDE
     Indication: PRURITUS
     Dosage: 5 MG
     Dates: start: 2014

REACTIONS (1)
  - Toxic skin eruption [Unknown]

NARRATIVE: CASE EVENT DATE: 2014
